FAERS Safety Report 19416553 (Version 3)
Quarter: 2021Q3

REPORT INFORMATION
  Report Type: Report from Study
  Country: RU (occurrence: RU)
  Receive Date: 20210614
  Receipt Date: 20210827
  Transmission Date: 20211014
  Serious: Yes (Hospitalization)
  Sender: FDA-Public Use
  Company Number: RU-PFIZER INC-2021681465

PATIENT
  Age: 61 Year
  Sex: Male
  Weight: 75 kg

DRUGS (4)
  1. PRESTARIUM [PERINDOPRIL] [Concomitant]
     Active Substance: PERINDOPRIL
     Indication: HYPERTENSION
     Dosage: 5 MG, 1X/DAY
     Route: 048
     Dates: start: 2015
  2. SUTENT [Suspect]
     Active Substance: SUNITINIB MALATE
     Indication: RENAL CELL CARCINOMA
     Dosage: 50 MG, 1X/DAY (4 WEEKS ON, 2 WEEKS OFF)
     Route: 048
     Dates: start: 20170531, end: 20210609
  3. PASSAGIX [Concomitant]
     Indication: CHRONIC GASTRITIS
     Dosage: 10 MG, AS NEEDED
     Route: 048
     Dates: start: 2016
  4. CHOLENZIM [Concomitant]
     Indication: CHOLECYSTITIS CHRONIC
     Dosage: 1 TAB, AS NEEDED
     Route: 048
     Dates: start: 2016

REACTIONS (1)
  - Left ventricular failure [Not Recovered/Not Resolved]

NARRATIVE: CASE EVENT DATE: 20210605
